FAERS Safety Report 6804732-7 (Version None)
Quarter: 2010Q2

REPORT INFORMATION
  Report Type: 
  Country: None (occurrence: None)
  Receive Date: 20100628
  Receipt Date: 20070523
  Transmission Date: 20101027
  Serious: No
  Sender: FDA-Public Use
  Company Number: US-PFIZER INC-2007043404

PATIENT
  Sex: Male

DRUGS (6)
  1. GENOTROPIN [Suspect]
     Indication: UNEVALUABLE EVENT
     Dates: start: 20061101
  2. AMBIEN [Concomitant]
  3. CODEINE SULFATE [Concomitant]
  4. HYDROCODONE [Concomitant]
  5. VICODIN [Concomitant]
  6. NEXIUM [Concomitant]

REACTIONS (1)
  - AGGRESSION [None]
